FAERS Safety Report 22127021 (Version 1)
Quarter: 2023Q1

REPORT INFORMATION
  Report Type: Spontaneous
  Country: US (occurrence: US)
  Receive Date: 20230322
  Receipt Date: 20230322
  Transmission Date: 20230418
  Serious: No
  Sender: FDA-Public Use
  Company Number: US-TARO PHARMACEUTICALS USA INC.-2022TAR00351

PATIENT

DRUGS (2)
  1. TRETINOIN [Suspect]
     Active Substance: TRETINOIN
     Indication: Sunburn
     Dosage: UNK, ONCE,TOPICAL ON THE FACE
     Route: 061
     Dates: start: 20220226
  2. TRETINOIN [Suspect]
     Active Substance: TRETINOIN
     Indication: Skin wrinkling

REACTIONS (2)
  - Application site swelling [Recovering/Resolving]
  - Off label use [Unknown]

NARRATIVE: CASE EVENT DATE: 20220226
